FAERS Safety Report 24677444 (Version 2)
Quarter: 2025Q1

REPORT INFORMATION
  Report Type: Spontaneous
  Country: US (occurrence: US)
  Receive Date: 20241129
  Receipt Date: 20250217
  Transmission Date: 20250409
  Serious: Yes (Hospitalization)
  Sender: CSL BEHRING
  Company Number: US-BEH-2024186392

PATIENT
  Age: 39 Year
  Sex: Male

DRUGS (1)
  1. CORIFACT [Suspect]
     Active Substance: FACTOR XIII CONCENTRATE (HUMAN)
     Indication: Coagulation factor deficiency
     Route: 042
     Dates: start: 202112

REACTIONS (1)
  - Hernia repair [Recovered/Resolved]

NARRATIVE: CASE EVENT DATE: 20241030
